FAERS Safety Report 9191396 (Version 2)
Quarter: 2013Q2

REPORT INFORMATION
  Report Type: Spontaneous
  Country: ES (occurrence: ES)
  Receive Date: 20130326
  Receipt Date: 20130416
  Transmission Date: 20140414
  Serious: Yes (Hospitalization, Other)
  Sender: FDA-Public Use
  Company Number: ES-PFIZER INC-2013095597

PATIENT
  Age: 43 Year
  Sex: Male

DRUGS (8)
  1. LYRICA [Suspect]
     Indication: ANXIETY DISORDER
     Dosage: 300 MG, 2X/DAY
     Route: 048
     Dates: start: 20121029
  2. LYRICA [Suspect]
     Indication: DEPRESSION
  3. BUPROPION [Concomitant]
     Dosage: 150 MG, UNK
     Route: 048
     Dates: start: 20121029
  4. OLANZAPINE [Concomitant]
     Dosage: 10 MG, UNK
     Route: 048
     Dates: start: 20121029, end: 20130225
  5. TRAZODONE [Concomitant]
     Dosage: 100 MG, UNK
     Route: 048
     Dates: start: 20121029
  6. LORAZEPAM [Concomitant]
     Dosage: 15 MG, 1X/DAY
     Route: 048
     Dates: start: 20121029, end: 20130225
  7. REBOXETINE [Concomitant]
     Dosage: 4 MG, UNK
     Route: 048
     Dates: start: 20121029, end: 20130225
  8. ETUMINA [Concomitant]
     Dosage: 40 MG, 1X/DAY
     Route: 048
     Dates: start: 20121029, end: 20130225

REACTIONS (2)
  - Drug abuse [Recovered/Resolved]
  - Dependence [Recovered/Resolved]
